FAERS Safety Report 4889682-8 (Version None)
Quarter: 2006Q1

REPORT INFORMATION
  Report Type: 
  Country: None (occurrence: None)
  Receive Date: 20060120
  Receipt Date: 20060112
  Transmission Date: 20060701
  Serious: Yes (Death)
  Sender: FDA-Public Use
  Company Number: 2005-12-1266

PATIENT
  Age: 55 Year
  Sex: Female

DRUGS (2)
  1. INTRON A [Suspect]
     Indication: HEPATITIS C
     Dosage: UNKNOWN; INTRAMUSCULAR
     Route: 030
  2. REBETOL [Suspect]
     Indication: HEPATITIS C
     Dosage: UNKNOWN; ORAL
     Route: 048

REACTIONS (3)
  - HEPATITIS C VIRUS [None]
  - LIVER TRANSPLANT REJECTION [None]
  - VIRAL LOAD INCREASED [None]
